FAERS Safety Report 10902560 (Version 2)
Quarter: 2015Q1

REPORT INFORMATION
  Report Type: Spontaneous
  Country: US (occurrence: US)
  Receive Date: 20150310
  Receipt Date: 20150311
  Transmission Date: 20150721
  Serious: Yes (Death, Other)
  Sender: FDA-Public Use
  Company Number: US-ACTAVIS-2015-05044

PATIENT
  Age: 7 Year
  Sex: Male

DRUGS (10)
  1. MONTELUKAST [Concomitant]
     Active Substance: MONTELUKAST SODIUM
     Indication: PRODUCT USED FOR UNKNOWN INDICATION
     Dosage: UNK
     Route: 065
  2. ONDANSETRON [Concomitant]
     Active Substance: ONDANSETRON
     Indication: PRODUCT USED FOR UNKNOWN INDICATION
     Dosage: UNK
     Route: 065
  3. METRONIDAZOLE (WATSON LABORATORIES) [Suspect]
     Active Substance: METRONIDAZOLE
     Indication: BACTERAEMIA
     Dosage: UNK
     Route: 065
  4. VANCOMYCIN HCL (WATSON LABORATORIES) [Suspect]
     Active Substance: VANCOMYCIN
     Indication: BACTERAEMIA
     Dosage: UNK
     Route: 065
  5. FENRETINIDE [Suspect]
     Active Substance: FENRETINIDE
     Indication: NEUROBLASTOMA RECURRENT
     Dosage: 1100 MG/M2, DAILY, CONTINUOUS INFUSION FOR 120 H
     Route: 042
  6. ACETAMINOPHEN (UNKNOWN) [Suspect]
     Active Substance: ACETAMINOPHEN
     Indication: PYREXIA
     Dosage: 15 MG, PRN
     Route: 065
  7. ACETAMINOPHEN (UNKNOWN) [Suspect]
     Active Substance: ACETAMINOPHEN
     Dosage: 10 MG/KG, SINGLE
     Route: 065
  8. IBUPROFEN (AMALLC) [Suspect]
     Active Substance: IBUPROFEN
     Indication: PYREXIA
     Dosage: 2 DF, UNKNOWN( 2 DOSES)
     Route: 065
  9. MEROPENEM (UNKNOWN) [Suspect]
     Active Substance: MEROPENEM
     Indication: BACTERAEMIA
     Dosage: UNK
     Route: 065
  10. CEFTRIAXONE (UNKNOWN) [Suspect]
     Active Substance: CEFTRIAXONE
     Indication: BACTERAEMIA
     Dosage: 750 MG, BID
     Route: 042

REACTIONS (7)
  - Papillary muscle disorder [Not Recovered/Not Resolved]
  - Hypotension [Unknown]
  - Drug interaction [Fatal]
  - Acute hepatic failure [Fatal]
  - Cholelithiasis [Not Recovered/Not Resolved]
  - Nephropathy toxic [Unknown]
  - Eosinophilic cellulitis [Not Recovered/Not Resolved]
